FAERS Safety Report 5291874-3 (Version None)
Quarter: 2007Q2

REPORT INFORMATION
  Report Type: 
  Country: None (occurrence: None)
  Receive Date: 20070406
  Receipt Date: 20070406
  Transmission Date: 20071010
  Serious: Yes (Hospitalization)
  Sender: FDA-Public Use
  Company Number: None

PATIENT
  Age: 73 Year

DRUGS (4)
  1. LISINOPRIL [Suspect]
     Dosage: 20 MG  BID  PO
     Route: 048
  2. POTASSIUM CHLORIDE [Suspect]
     Dosage: 40 MCQ  BID  PO
     Route: 048
  3. SPIRONOLACTONE [Suspect]
  4. IBUPROFEN [Suspect]

REACTIONS (5)
  - DIARRHOEA [None]
  - DIZZINESS [None]
  - HYPOTENSION [None]
  - NAUSEA [None]
  - VOMITING [None]
